FAERS Safety Report 20897003 (Version 1)
Quarter: 2022Q2

REPORT INFORMATION
  Report Type: Spontaneous
  Country: CN (occurrence: CN)
  Receive Date: 20220531
  Receipt Date: 20220531
  Transmission Date: 20220720
  Serious: Yes (Other)
  Sender: FDA-Public Use
  Company Number: CN-PFIZER INC-202200772368

PATIENT
  Age: 57 Year
  Sex: Female
  Weight: 68.5 kg

DRUGS (3)
  1. EPIRUBICIN HYDROCHLORIDE [Suspect]
     Active Substance: EPIRUBICIN HYDROCHLORIDE
     Indication: Thyroid cancer
     Dosage: 100 MG, 1X/DAY
     Route: 041
     Dates: start: 20220520, end: 20220520
  2. IFOSFAMIDE [Suspect]
     Active Substance: IFOSFAMIDE
     Indication: Thyroid cancer
     Dosage: 2 G, 1X/DAY
     Route: 041
     Dates: start: 20220520, end: 20220522
  3. SINTILIMAB [Concomitant]
     Active Substance: SINTILIMAB
     Indication: Thyroid cancer
     Dosage: 200 MG, 1X/DAY
     Route: 041
     Dates: start: 20220519, end: 20220519

REACTIONS (5)
  - Nausea [Recovered/Resolved]
  - Asthenia [Recovering/Resolving]
  - Decreased appetite [Recovered/Resolved]
  - Myelosuppression [Recovering/Resolving]
  - Off label use [Unknown]

NARRATIVE: CASE EVENT DATE: 20220501
